FAERS Safety Report 23617105 (Version 2)
Quarter: 2024Q3

REPORT INFORMATION
  Report Type: Spontaneous
  Country: CA (occurrence: CA)
  Receive Date: 20240311
  Receipt Date: 20240722
  Transmission Date: 20241016
  Serious: Yes (Other)
  Sender: FRESENIUS KABI
  Company Number: CA-FreseniusKabi-FK202403682

PATIENT
  Sex: Female

DRUGS (15)
  1. MOXIFLOXACIN HYDROCHLORIDE [Suspect]
     Active Substance: MOXIFLOXACIN HYDROCHLORIDE\MOXIFLOXACIN HYDROCHLORIDE MONOHYDRATE
     Indication: Pneumonia
     Dosage: ROUTE OF ADMINISTRATION: UNKNOWN
  2. AMOXICILLIN AND CLAVULANATE POTASSIUM [Suspect]
     Active Substance: AMOXICILLIN\CLAVULANATE POTASSIUM
     Indication: Pneumonia
     Dosage: ROA - UNKNOWN
  3. CEFADROXIL [Suspect]
     Active Substance: CEFADROXIL
     Indication: Cellulitis
     Dosage: NOT SPECIFIED?ROA - UNKNOWN
  4. LEVOFLOXACIN [Suspect]
     Active Substance: LEVOFLOXACIN
     Indication: Pneumonia
     Dosage: FORM OF ADMIN: SOLUTION INHALATION
  5. LEVOFLOXACIN HEMIHYDRATE [Suspect]
     Active Substance: LEVOFLOXACIN
     Indication: Pneumonia
  6. DURVALUMAB [Concomitant]
     Active Substance: DURVALUMAB
     Indication: Metastatic neoplasm
     Dosage: DURATION: 731?ROA - UNKNOWN
  7. DURVALUMAB [Concomitant]
     Active Substance: DURVALUMAB
     Indication: Malignant melanoma
     Dosage: ROA - UNKNOWN
  8. IPILIMUMAB [Concomitant]
     Active Substance: IPILIMUMAB
     Indication: Metastatic neoplasm
     Dosage: ROA - UNKNOWN
  9. IPILIMUMAB [Concomitant]
     Active Substance: IPILIMUMAB
     Indication: Malignant melanoma
     Dosage: DURATION: 31?ROA - UNKNOWN
  10. IPILIMUMAB [Concomitant]
     Active Substance: IPILIMUMAB
     Indication: Disease progression
  11. NIVOLUMAB [Concomitant]
     Active Substance: NIVOLUMAB
     Indication: Metastatic neoplasm
     Dosage: FOA - SOLUTION FOR INJECTION/INFUSION
  12. NIVOLUMAB [Concomitant]
     Active Substance: NIVOLUMAB
     Indication: Malignant melanoma
     Dosage: FORM OF ADMIN: SOLUTION INTRAVENOUS?ROA - UNKNOWN
  13. NIVOLUMAB [Concomitant]
     Active Substance: NIVOLUMAB
     Indication: Disease progression
     Dosage: ROA - UNKNOWN?FOA - SOLUTION FOR INJECTION/INFUSION
  14. TRAMETINIB [Concomitant]
     Active Substance: TRAMETINIB
     Indication: Metastatic neoplasm
     Dosage: DURATION: 731?ROA - UNKNOWN
  15. TRAMETINIB [Concomitant]
     Active Substance: TRAMETINIB
     Indication: Malignant melanoma

REACTIONS (3)
  - Gastrointestinal disorder [Recovering/Resolving]
  - Metastatic malignant melanoma [Recovering/Resolving]
  - Neoplasm progression [Recovering/Resolving]
